FAERS Safety Report 5977907-7 (Version None)
Quarter: 2008Q4

REPORT INFORMATION
  Report Type: 
  Country: None (occurrence: None)
  Receive Date: 20081203
  Receipt Date: 20081126
  Transmission Date: 20090506
  Serious: Yes (Hospitalization)
  Sender: FDA-Public Use
  Company Number: GB-ASTRAZENECA-2008GB01908

PATIENT
  Sex: Female

DRUGS (2)
  1. SYMBICORT [Suspect]
     Indication: ASTHMA
     Dosage: 100/6 2 PUFFS TWICE A DAY
     Route: 055
     Dates: start: 20080717, end: 20080817
  2. NITROLINGUAL [Concomitant]
     Indication: ANGINA PECTORIS
     Route: 060

REACTIONS (2)
  - ANGINA PECTORIS [None]
  - PANIC ATTACK [None]
